FAERS Safety Report 16872911 (Version 3)
Quarter: 2021Q4

REPORT INFORMATION
  Report Type: Spontaneous
  Country: US (occurrence: US)
  Receive Date: 20191001
  Receipt Date: 20211216
  Transmission Date: 20220303
  Serious: Yes (Other)
  Sender: FDA-Public Use
  Company Number: US-KYOWAKIRIN-2019BKK015056

PATIENT

DRUGS (3)
  1. CRYSVITA [Suspect]
     Active Substance: BUROSUMAB-TWZA
     Indication: Hereditary hypophosphataemic rickets
     Dosage: 26 MG, 1X/2 WEEKS
     Route: 058
     Dates: start: 20190822
  2. CRYSVITA [Suspect]
     Active Substance: BUROSUMAB-TWZA
     Dosage: 30 MG, EVERY OTHER WEEK
     Route: 058
     Dates: start: 20190822
  3. CRYSVITA [Suspect]
     Active Substance: BUROSUMAB-TWZA
     Indication: Hereditary hypophosphataemic rickets
     Dosage: 5 MG, EVERY OTHER WEEK
     Route: 058
     Dates: start: 20190822

REACTIONS (4)
  - Illness [Unknown]
  - Malaise [Unknown]
  - Nausea [Unknown]
  - Off label use [Not Recovered/Not Resolved]

NARRATIVE: CASE EVENT DATE: 20190822
